FAERS Safety Report 17599290 (Version 1)
Quarter: 2020Q1

REPORT INFORMATION
  Report Type: Spontaneous
  Country: CN (occurrence: CN)
  Receive Date: 20200330
  Receipt Date: 20200330
  Transmission Date: 20200409
  Serious: Yes (Other)
  Sender: FDA-Public Use
  Company Number: NVSC2020CN086647

PATIENT
  Age: 81 Year
  Sex: Male
  Weight: 70 kg

DRUGS (1)
  1. TRILEPTAL [Suspect]
     Active Substance: OXCARBAZEPINE
     Indication: ANALGESIC THERAPY
     Dosage: 0.15 G, BID
     Route: 048
     Dates: start: 20200312, end: 20200314

REACTIONS (1)
  - Balance disorder [Recovering/Resolving]

NARRATIVE: CASE EVENT DATE: 20200313
